FAERS Safety Report 9729416 (Version 2)
Quarter: 2015Q3

REPORT INFORMATION
  Report Type: Spontaneous
  Country: US (occurrence: US)
  Receive Date: 20131204
  Receipt Date: 20150804
  Transmission Date: 20151125
  Serious: No
  Sender: FDA-Public Use
  Company Number: US-GILEAD-2009-0021193

PATIENT
  Age: 66 Year
  Sex: Male
  Weight: 89.81 kg

DRUGS (13)
  1. ENULOSE [Concomitant]
     Active Substance: LACTULOSE
  2. LEVOTHYROXINE. [Concomitant]
     Active Substance: LEVOTHYROXINE
  3. SP GREEN FOOD [Concomitant]
  4. LETAIRIS [Suspect]
     Active Substance: AMBRISENTAN
     Indication: PULMONARY ARTERIAL HYPERTENSION
     Route: 048
     Dates: start: 20090313
  5. ESSIAC [Concomitant]
  6. GASTROFIBER [Concomitant]
  7. ALDACTONE [Concomitant]
     Active Substance: SPIRONOLACTONE
  8. SM FLAX OIL [Concomitant]
  9. LASIX [Concomitant]
     Active Substance: FUROSEMIDE
  10. SP DIETARY [Concomitant]
  11. KANGEN [Concomitant]
  12. AMOXICILLIN. [Concomitant]
     Active Substance: AMOXICILLIN
  13. MARSHMALLOW ROOT [Concomitant]

REACTIONS (1)
  - Fluid retention [Unknown]
